FAERS Safety Report 16924102 (Version 1)
Quarter: 2019Q4

REPORT INFORMATION
  Report Type: Spontaneous
  Country: US (occurrence: US)
  Receive Date: 20191015
  Receipt Date: 20191015
  Transmission Date: 20200122
  Serious: Yes (Disabling)
  Sender: FDA-Public Use
  Company Number: None

PATIENT
  Age: 77 Year
  Sex: Male
  Weight: 92.25 kg

DRUGS (28)
  1. XANAX [Concomitant]
     Active Substance: ALPRAZOLAM
  2. MENS MULTIVITAMIN [Concomitant]
  3. MAGNESIUM [Concomitant]
     Active Substance: MAGNESIUM
  4. L. REUTERI [Concomitant]
  5. DIGOXIN. [Concomitant]
     Active Substance: DIGOXIN
  6. USE OF WALKER [Concomitant]
  7. HEART SMART [Concomitant]
  8. FOLATE [Concomitant]
     Active Substance: FOLATE SODIUM
  9. VITAMIN B12 [Concomitant]
     Active Substance: CYANOCOBALAMIN
  10. SAFFRON [Concomitant]
     Active Substance: SAFFRON
  11. FRUIT FOR LIFE [Concomitant]
  12. VITAMIN D3 [Concomitant]
     Active Substance: CHOLECALCIFEROL
  13. MEGA TRIBULUS [Concomitant]
  14. COREG [Suspect]
     Active Substance: CARVEDILOL
     Indication: CARDIAC FAILURE
     Dosage: ?          QUANTITY:1 TABLET(S);?
     Route: 048
  15. BUMETANIDE. [Suspect]
     Active Substance: BUMETANIDE
     Indication: CARDIAC FAILURE CONGESTIVE
     Dosage: ?          QUANTITY:1 TABLET(S);OTHER FREQUENCY:EVERY OTHER DAY;?
     Route: 048
  16. COLCHICINE. [Concomitant]
     Active Substance: COLCHICINE
  17. TYLENOL [Concomitant]
     Active Substance: ACETAMINOPHEN
  18. GLUCOASAMINE\MSM [Concomitant]
  19. FLAXSEED [Concomitant]
     Active Substance: FLAX SEED
  20. CBD FLAXSEES COMBO [Concomitant]
  21. VEGGIES FOR LIFE [Concomitant]
  22. L-ARGININE [Concomitant]
     Active Substance: ARGININE
  23. URIC ACID CLEANSE [Concomitant]
  24. TART CHERRY [Concomitant]
  25. TUMERIC + BLACK PEPPER [Concomitant]
  26. BILBERRY [Concomitant]
     Active Substance: BILBERRY
  27. FENEGREEK [Concomitant]
  28. COQ10 [Concomitant]
     Active Substance: UBIDECARENONE

REACTIONS (2)
  - Arthropathy [None]
  - Gout [None]

NARRATIVE: CASE EVENT DATE: 20191009
